FAERS Safety Report 14520603 (Version 2)
Quarter: 2018Q2

REPORT INFORMATION
  Report Type: Spontaneous
  Country: US (occurrence: US)
  Receive Date: 20180212
  Receipt Date: 20180511
  Transmission Date: 20180711
  Serious: No
  Sender: FDA-Public Use
  Company Number: US-AMGEN-USASP2017181173

PATIENT
  Age: 49 Year
  Sex: Male

DRUGS (1)
  1. PARSABIV [Suspect]
     Active Substance: ETELCALCETIDE HYDROCHLORIDE
     Indication: HYPERPARATHYROIDISM TERTIARY
     Dosage: 5 MG, 3 TIMES/WK
     Route: 065
     Dates: start: 20171204

REACTIONS (3)
  - Off label use [Unknown]
  - Gastric disorder [Unknown]
  - Nausea [Unknown]

NARRATIVE: CASE EVENT DATE: 20171204
